FAERS Safety Report 4417834-X (Version None)
Quarter: 2004Q2

REPORT INFORMATION
  Report Type: 
  Country: None (occurrence: None)
  Receive Date: 20040621
  Receipt Date: 20040514
  Transmission Date: 20050107
  Serious: Yes (Hospitalization, Other)
  Sender: FDA-Public Use
  Company Number: 2004023188

PATIENT
  Age: 80 Year
  Sex: Female
  Weight: 45 kg

DRUGS (19)
  1. VFEND [Suspect]
     Indication: FEBRILE NEUTROPENIA
     Dosage: 400 MG, (BID), ORAL
     Route: 048
     Dates: start: 20040325
  2. VFEND [Suspect]
     Indication: FUNGAL INFECTION
     Dosage: 400 MG, (BID), ORAL
     Route: 048
     Dates: start: 20040325
  3. VFEND [Suspect]
     Indication: LUNG INFILTRATION
     Dosage: 400 MG, (BID), ORAL
     Route: 048
     Dates: start: 20040325
  4. METRONIDAZOLE [Suspect]
     Indication: BACTERIAL INFECTION
     Dosage: 1500 MG (TID), INTRAVENOUS
     Route: 042
     Dates: start: 20040315, end: 20040404
  5. ALLOPURINOL [Concomitant]
  6. EPOETIN ALFA (EPOETIN ALFA) [Concomitant]
  7. CALCIUM (CALCIUM) [Concomitant]
  8. LEVOFLOXACIN [Concomitant]
  9. VANCOMYCIN [Concomitant]
  10. LEVOTHYROXINE SODIUM [Concomitant]
  11. TAMOXIFEN CITRATE [Concomitant]
  12. FOLIC ACID [Concomitant]
  13. LANSOPRAZOLE [Concomitant]
  14. ESCITALOPRAM (ESCITALOPRAM) [Concomitant]
  15. ALL OTHER THERAPEUTIC PRODUCTS (ALL OTHER THERAPEUTIC PRODUCTS) [Concomitant]
  16. FILGRASTIM (FILGRASTIM) [Concomitant]
  17. PROCHLORPERAZINE [Concomitant]
  18. POTASSIUM CHLORIDE [Concomitant]
  19. CALCIUM CARBONATE (CALCIUM CARBONATE) [Concomitant]

REACTIONS (2)
  - DRUG INTERACTION [None]
  - HALLUCINATION, VISUAL [None]
